FAERS Safety Report 6607107-9 (Version None)
Quarter: 2010Q1

REPORT INFORMATION
  Report Type: 
  Country: None (occurrence: None)
  Receive Date: 20100219
  Receipt Date: 20100204
  Transmission Date: 20100710
  Serious: Yes (Death)
  Sender: FDA-Public Use
  Company Number: AE 2010-020

PATIENT
  Age: 36 Year
  Sex: Female

DRUGS (3)
  1. FAZACLO ODT [Suspect]
     Indication: PSYCHOTIC DISORDER
     Dosage: 75MG DAILY PO
     Route: 048
     Dates: start: 20090908, end: 20091222
  2. IBUPROFEN [Concomitant]
  3. TETRABENAZINE [Concomitant]

REACTIONS (2)
  - DISEASE PROGRESSION [None]
  - HUNTINGTON'S CHOREA [None]
